FAERS Safety Report 8076650-0 (Version None)
Quarter: 2012Q1

REPORT INFORMATION
  Report Type: 
  Country: None (occurrence: None)
  Receive Date: 20120127
  Receipt Date: 20120116
  Transmission Date: 20120608
  Serious: Yes (Hospitalization)
  Sender: FDA-Public Use
  Company Number: PHHY2012FR004713

PATIENT
  Sex: Male

DRUGS (9)
  1. SINTROM [Interacting]
     Dosage: UNK
  2. AMOXICILLIN AND CLAVULANATE POTASSIUM [Suspect]
  3. HEPARIN SODIUM [Interacting]
     Dosage: 20 KIU, UNK
  4. PLAVIX [Concomitant]
  5. ASPIRIN [Concomitant]
  6. CIPROFLOXACIN [Interacting]
     Dosage: 500 MG, BID
     Dates: start: 20111209, end: 20111216
  7. HEPARIN SODIUM [Interacting]
     Dosage: 22 KIU, UNK
     Route: 042
     Dates: start: 20111208
  8. HEPARIN SODIUM [Interacting]
     Dosage: 15 KIU, UNK
     Dates: end: 20111215
  9. SINTROM [Interacting]
     Dosage: 4 MG, QD
     Dates: start: 20111202, end: 20111212

REACTIONS (4)
  - INTERNATIONAL NORMALISED RATIO INCREASED [None]
  - ANAEMIA [None]
  - DRUG INTERACTION [None]
  - HAEMORRHAGE [None]
